FAERS Safety Report 21509955 (Version 3)
Quarter: 2022Q4

REPORT INFORMATION
  Report Type: Report from Study
  Country: CO (occurrence: CO)
  Receive Date: 20221026
  Receipt Date: 20221229
  Transmission Date: 20230112
  Serious: Yes (Hospitalization, Other)
  Sender: FDA-Public Use
  Company Number: CO-AMGEN-COLSL2021039251

PATIENT
  Age: 69 Year
  Sex: Female

DRUGS (6)
  1. VECTIBIX [Suspect]
     Active Substance: PANITUMUMAB
     Indication: Colorectal cancer metastatic
     Dosage: 300 MILLIGRAM, Q2WK (BIWEEKLY)
     Route: 042
     Dates: start: 20200901, end: 20210512
  2. VECTIBIX [Suspect]
     Active Substance: PANITUMUMAB
     Dosage: 300 MILLIGRAM, Q2WK
     Route: 042
     Dates: start: 20210701
  3. VECTIBIX [Suspect]
     Active Substance: PANITUMUMAB
     Dosage: 270 MILLIGRAM, Q2WK
     Route: 042
     Dates: start: 20220222
  4. VECTIBIX [Suspect]
     Active Substance: PANITUMUMAB
     Dosage: 270 MILLIGRAM, Q2WK
     Route: 040
     Dates: start: 20220901
  5. POLYVINYL ALCOHOL\POVIDONE [Concomitant]
     Active Substance: POLYVINYL ALCOHOL\POVIDONE
     Dosage: APPLY 1 DROP IN EACH EYE EVERY 12 HOURS
     Dates: start: 20210320
  6. POLYVINYL ALCOHOL [Concomitant]
     Active Substance: POLYVINYL ALCOHOL
     Dosage: 15 MILLILITER, APPLY 1 OR 2 DROPS IN EACH EYE 2 TO 3 TIMES A DAY.
     Route: 065
     Dates: start: 20221222

REACTIONS (8)
  - Hyperhidrosis [Not Recovered/Not Resolved]
  - Dyspnoea [Not Recovered/Not Resolved]
  - Hospitalisation [Recovered/Resolved]
  - Vulvovaginal dryness [Not Recovered/Not Resolved]
  - Vulvovaginal pruritus [Not Recovered/Not Resolved]
  - Vulvovaginal burning sensation [Not Recovered/Not Resolved]
  - Skin reaction [Not Recovered/Not Resolved]
  - Dry skin [Not Recovered/Not Resolved]

NARRATIVE: CASE EVENT DATE: 20210201
